FAERS Safety Report 7779714-1 (Version None)
Quarter: 2011Q3

REPORT INFORMATION
  Report Type: 
  Country: None (occurrence: None)
  Receive Date: 20110927
  Receipt Date: 20110921
  Transmission Date: 20111222
  Serious: Yes (Hospitalization)
  Sender: FDA-Public Use
  Company Number: ES-ABBOTT-11P-144-0856403-00

PATIENT
  Age: 38 Year
  Sex: Male

DRUGS (7)
  1. CALCIUM + VITAMIN D [Concomitant]
     Indication: PRODUCT USED FOR UNKNOWN INDICATION
  2. AZATHIOPRINE [Concomitant]
     Indication: PRODUCT USED FOR UNKNOWN INDICATION
  3. LANSOPRAZOLE [Concomitant]
     Indication: PRODUCT USED FOR UNKNOWN INDICATION
  4. VITAMIN B-12 [Concomitant]
     Indication: PRODUCT USED FOR UNKNOWN INDICATION
     Route: 030
  5. HUMIRA [Suspect]
     Indication: CROHN'S DISEASE
     Route: 058
     Dates: start: 20110301, end: 20110518
  6. IMURAN [Suspect]
     Indication: CROHN'S DISEASE
     Route: 048
     Dates: start: 20100101, end: 20110518
  7. CALCITRIOL [Concomitant]
     Indication: PRODUCT USED FOR UNKNOWN INDICATION

REACTIONS (7)
  - PRURIGO [None]
  - RASH VESICULAR [None]
  - HERPES ZOSTER [None]
  - BODY TEMPERATURE FLUCTUATION [None]
  - RASH MACULO-PAPULAR [None]
  - RASH ERYTHEMATOUS [None]
  - MUSCULOSKELETAL PAIN [None]
